FAERS Safety Report 9559764 (Version 1)
Quarter: 2013Q3

REPORT INFORMATION
  Report Type: Spontaneous
  Country: US (occurrence: None)
  Receive Date: 20130821
  Receipt Date: 20130821
  Transmission Date: 20140515
  Serious: No
  Sender: FDA-Public Use
  Company Number: 1000045766

PATIENT
  Age: 82 Year
  Sex: Female

DRUGS (1)
  1. TUDORZA PRESSAIR (ACLIDINIUM BROMIDE) (400 MICROGRAM, POWDER) [Suspect]
     Indication: CHRONIC OBSTRUCTIVE PULMONARY DISEASE
     Route: 055
     Dates: start: 201304, end: 20130602

REACTIONS (6)
  - Dysphagia [None]
  - Oropharyngeal pain [None]
  - Choking [None]
  - Eye disorder [None]
  - Lip dry [None]
  - Dysphonia [None]
